FAERS Safety Report 22607897 (Version 1)
Quarter: 2023Q2

REPORT INFORMATION
  Report Type: Spontaneous
  Country: PL (occurrence: PL)
  Receive Date: 20230616
  Receipt Date: 20230616
  Transmission Date: 20230721
  Serious: Yes (Other)
  Sender: FDA-Public Use
  Company Number: PL-002147023-NVSC2023PL126586

PATIENT
  Age: 37 Year
  Sex: Male

DRUGS (4)
  1. TACROLIMUS [Suspect]
     Active Substance: TACROLIMUS
     Indication: Product used for unknown indication
     Dosage: UNK UNK, UNKNOWN FREQ.
     Route: 065
  2. METHYLPREDNISOLONE [Suspect]
     Active Substance: METHYLPREDNISOLONE
     Indication: Product used for unknown indication
     Dosage: UNK UNK, UNKNOWN FREQ.
     Route: 065
  3. RUXOLITINIB [Suspect]
     Active Substance: RUXOLITINIB
     Indication: Graft versus host disease
     Dosage: 5 MG, (2X5MG) UNKNOWN FREQ.
     Route: 065
  4. RUXOLITINIB [Suspect]
     Active Substance: RUXOLITINIB
     Dosage: 10 MG,  (2X10 MG) UNKNOWN FREQ.
     Route: 065

REACTIONS (5)
  - Cytomegalovirus infection [Unknown]
  - Thrombocytopenia [Unknown]
  - Cytopenia [Unknown]
  - BK virus infection [Unknown]
  - Infection reactivation [Unknown]
